FAERS Safety Report 5490943-2 (Version None)
Quarter: 2007Q4

REPORT INFORMATION
  Report Type: 
  Country: None (occurrence: None)
  Receive Date: 20071019
  Receipt Date: 20071012
  Transmission Date: 20080405
  Serious: Yes (Other)
  Sender: FDA-Public Use
  Company Number: CA-ASTRAZENECA-2007UW23977

PATIENT
  Age: 20 Year
  Sex: Male

DRUGS (4)
  1. SEROQUEL [Suspect]
     Route: 048
  2. CLOZARIL [Suspect]
     Route: 048
  3. ALLERTEC [Concomitant]
  4. CLONAZEPAM [Concomitant]

REACTIONS (10)
  - BLOOD CREATINE PHOSPHOKINASE INCREASED [None]
  - CONVULSION [None]
  - EYE ROLLING [None]
  - GAIT DISTURBANCE [None]
  - HYPERPYREXIA [None]
  - MYALGIA [None]
  - NEUROLEPTIC MALIGNANT SYNDROME [None]
  - SEPSIS [None]
  - STUPOR [None]
  - URINARY INCONTINENCE [None]
